FAERS Safety Report 8483419-1 (Version None)
Quarter: 2012Q3

REPORT INFORMATION
  Report Type: 
  Country: None (occurrence: None)
  Receive Date: 20120702
  Receipt Date: 20120620
  Transmission Date: 20120928
  Serious: Yes (Death)
  Sender: FDA-Public Use
  Company Number: JP-SANOFI-AVENTIS-2012SA044608

PATIENT
  Age: 50 Year
  Sex: Female

DRUGS (4)
  1. EPIRUBICIN [Suspect]
     Dosage: RECEIVED EIGHT COURSES.
     Route: 065
  2. THERAPEUTIC RADIOPHARMACEUTICALS [Suspect]
     Dosage: RECEIVED 50 GY OF IRRADIATION TO CONSERVED BREAST AND SUPRACLAVICULAR FOSSA
     Route: 065
  3. CYCLOPHOSPHAMIDE [Suspect]
     Dosage: RECEIVED EIGHT COURSES.
     Route: 065
  4. DOCETAXEL [Suspect]
     Dosage: EIGHT COURSES.
     Route: 065

REACTIONS (1)
  - ACUTE MYELOID LEUKAEMIA [None]
